FAERS Safety Report 10014840 (Version 1)
Quarter: 2014Q1

REPORT INFORMATION
  Report Type: Report from Study
  Country: CN (occurrence: CN)
  Receive Date: 20140317
  Receipt Date: 20140317
  Transmission Date: 20141002
  Serious: Yes (Life-Threatening)
  Sender: FDA-Public Use
  Company Number: CN-ASTRAZENECA-2014SE17341

PATIENT
  Sex: 0

DRUGS (1)
  1. DIPRIVAN [Suspect]
     Indication: COLONOSCOPY
     Dosage: AS REQUIRED
     Route: 042

REACTIONS (2)
  - Aspiration [Recovered/Resolved]
  - Regurgitation [Recovered/Resolved]
